FAERS Safety Report 8769454 (Version 1)
Quarter: 2012Q4

REPORT INFORMATION
  Report Type: 
  Country: DE (occurrence: DE)
  Receive Date: 20120905
  Receipt Date: 20120905
  Transmission Date: 20130627
  Serious: Yes (Other)
  Sender: FDA-Public Use
  Company Number: DE-UCBSA-001755

PATIENT
  Age: 39 Year
  Sex: Female

DRUGS (1)
  1. LACOSAMIDE [Suspect]
     Indication: EPILEPSY
     Dosage: MAXIMUM LACOSAMIDE DOSE PER DAY 400MG

REACTIONS (2)
  - Thrombocytopenia [Not Recovered/Not Resolved]
  - Pancytopenia [Not Recovered/Not Resolved]
